FAERS Safety Report 5837999-2 (Version None)
Quarter: 2008Q3

REPORT INFORMATION
  Report Type: 
  Country: None (occurrence: None)
  Receive Date: 20080808
  Receipt Date: 20080211
  Transmission Date: 20090109
  Serious: No
  Sender: FDA-Public Use
  Company Number: A0708713A

PATIENT
  Age: 16 Year
  Sex: Female

DRUGS (2)
  1. PAXIL [Suspect]
     Dosage: 20MG PER DAY
     Route: 048
     Dates: start: 20040101
  2. PAROXETINE HCL [Suspect]
     Dosage: 20MG PER DAY
     Route: 048

REACTIONS (4)
  - ABNORMAL BEHAVIOUR [None]
  - DRUG EXPOSURE DURING PREGNANCY [None]
  - IRRITABILITY [None]
  - NEGATIVISM [None]
